FAERS Safety Report 4739872-X (Version None)
Quarter: 2005Q3

REPORT INFORMATION
  Report Type: 
  Country: None (occurrence: None)
  Receive Date: 20050805
  Receipt Date: 20050801
  Transmission Date: 20060218
  Serious: Yes (Hospitalization)
  Sender: FDA-Public Use
  Company Number: 05-07-1153

PATIENT
  Age: 49 Year
  Sex: Female
  Weight: 102.5129 kg

DRUGS (2)
  1. BACLOFEN [Suspect]
     Indication: FALL
     Dosage: 10MG TID ORAL
     Route: 048
     Dates: start: 20050614, end: 20050616
  2. BACLOFEN [Suspect]
     Indication: MYALGIA
     Dosage: 10MG TID ORAL
     Route: 048
     Dates: start: 20050614, end: 20050616

REACTIONS (6)
  - BLOOD CREATINE PHOSPHOKINASE INCREASED [None]
  - CHEST PAIN [None]
  - HYPOAESTHESIA ORAL [None]
  - MITRAL VALVE PROLAPSE [None]
  - PALPITATIONS [None]
  - PARAESTHESIA ORAL [None]
